FAERS Safety Report 16804951 (Version 2)
Quarter: 2020Q3

REPORT INFORMATION
  Report Type: Spontaneous
  Country: CR (occurrence: CR)
  Receive Date: 20190913
  Receipt Date: 20200922
  Transmission Date: 20201102
  Serious: Yes (Death, Hospitalization, Other)
  Sender: FDA-Public Use
  Company Number: CR-APOTEX-2019AP021713

PATIENT
  Age: 20 Year
  Sex: Female

DRUGS (3)
  1. MYCOPHENOLATE [Suspect]
     Active Substance: MYCOPHENOLIC ACID
     Indication: GRAFT VERSUS HOST DISEASE
     Dosage: UNK
     Route: 065
  2. TACROLIMUS. [Suspect]
     Active Substance: TACROLIMUS
     Indication: GRAFT VERSUS HOST DISEASE
     Dosage: UNK
     Route: 065
  3. CYCLOPHOSPHAMIDE. [Suspect]
     Active Substance: CYCLOPHOSPHAMIDE
     Indication: PRODUCT USED FOR UNKNOWN INDICATION
     Dosage: UNK
     Route: 065

REACTIONS (5)
  - Cardiac arrest [Fatal]
  - Pericardial effusion [Fatal]
  - Haematuria [Unknown]
  - Adenovirus infection [Fatal]
  - Infection [Unknown]
